FAERS Safety Report 9201750 (Version 1)
Quarter: 2013Q2

REPORT INFORMATION
  Report Type: Report from Study
  Country: US (occurrence: US)
  Receive Date: 20130401
  Receipt Date: 20130401
  Transmission Date: 20140414
  Serious: Yes (Hospitalization)
  Sender: FDA-Public Use
  Company Number: US-ROCHE-1155278

PATIENT
  Age: 79 Year
  Sex: Male
  Weight: 77.18 kg

DRUGS (1)
  1. CAPECITABINE [Suspect]
     Indication: COLON CANCER
     Route: 048
     Dates: start: 201209, end: 201211

REACTIONS (8)
  - Weight decreased [Unknown]
  - Insomnia [Not Recovered/Not Resolved]
  - Diarrhoea [Unknown]
  - Aphagia [Not Recovered/Not Resolved]
  - Confusional state [Not Recovered/Not Resolved]
  - Staring [Not Recovered/Not Resolved]
  - Alopecia [Not Recovered/Not Resolved]
  - Colon operation [Recovered/Resolved]
